FAERS Safety Report 10052526 (Version 1)
Quarter: 2014Q2

REPORT INFORMATION
  Report Type: Spontaneous
  Country: CN (occurrence: CN)
  Receive Date: 20140402
  Receipt Date: 20140402
  Transmission Date: 20141212
  Serious: Yes (Other)
  Sender: FDA-Public Use
  Company Number: CN-009507513-1403CHN013252

PATIENT
  Age: 84 Year
  Sex: Female
  Weight: 48 kg

DRUGS (1)
  1. TIENAM [Suspect]
     Indication: CHOLECYSTITIS ACUTE
     Dosage: 2 G TOTAL DAILY DOSE, Q6H
     Route: 041
     Dates: start: 20121224, end: 20121224

REACTIONS (1)
  - Delirium [Recovering/Resolving]
